FAERS Safety Report 25549236 (Version 2)
Quarter: 2025Q3

REPORT INFORMATION
  Report Type: Spontaneous
  Country: AU (occurrence: AU)
  Receive Date: 20250714
  Receipt Date: 20250925
  Transmission Date: 20251021
  Serious: Yes (Other)
  Sender: CSL BEHRING
  Company Number: AU-BEH-2025211380

PATIENT
  Age: 88 Year
  Sex: Male
  Weight: 62 kg

DRUGS (4)
  1. BERIPLEX HS [Suspect]
     Active Substance: COAGULATION FACTOR IX HUMAN\COAGULATION FACTOR VII HUMAN\COAGULATION FACTOR X HUMAN\PROTEIN C\PROTEI
     Indication: Procoagulant therapy
     Route: 042
     Dates: start: 20250620, end: 20250620
  2. BERIPLEX HS [Suspect]
     Active Substance: COAGULATION FACTOR IX HUMAN\COAGULATION FACTOR VII HUMAN\COAGULATION FACTOR X HUMAN\PROTEIN C\PROTEI
     Indication: Procoagulant therapy
     Route: 042
     Dates: start: 20250620, end: 20250620
  3. BERIPLEX P/N [Suspect]
     Active Substance: COAGULATION FACTOR IX HUMAN\COAGULATION FACTOR VII HUMAN\COAGULATION FACTOR X HUMAN\PROTEIN C\PROTEI
     Indication: Procoagulant therapy
     Route: 065
  4. BERIPLEX P/N [Suspect]
     Active Substance: COAGULATION FACTOR IX HUMAN\COAGULATION FACTOR VII HUMAN\COAGULATION FACTOR X HUMAN\PROTEIN C\PROTEI
     Indication: Procoagulant therapy
     Route: 065

REACTIONS (3)
  - Product dispensing error [Unknown]
  - Wrong product administered [Unknown]
  - Off label use [Unknown]

NARRATIVE: CASE EVENT DATE: 20250620
